FAERS Safety Report 9601640 (Version 1)
Quarter: 2013Q4

REPORT INFORMATION
  Report Type: Spontaneous
  Country: AU (occurrence: AU)
  Receive Date: 20131007
  Receipt Date: 20131007
  Transmission Date: 20140711
  Serious: Yes (Other)
  Sender: FDA-Public Use
  Company Number: AU-BRISTOL-MYERS SQUIBB COMPANY-19506336

PATIENT
  Age: 55 Year
  Sex: Male
  Weight: 148 kg

DRUGS (1)
  1. BYETTA PEN DISPOSABLE [Suspect]
     Indication: DIABETES MELLITUS
     Dosage: THERAPY ON 14JUL13
     Route: 058
     Dates: start: 201205

REACTIONS (6)
  - Chest pain [Unknown]
  - Visual acuity reduced [Unknown]
  - Weight increased [Unknown]
  - Expired drug administered [Unknown]
  - Weight decreased [Unknown]
  - Blood glucose abnormal [Unknown]
